FAERS Safety Report 15397449 (Version 3)
Quarter: 2018Q4

REPORT INFORMATION
  Report Type: Spontaneous
  Country: JP (occurrence: JP)
  Receive Date: 20180918
  Receipt Date: 20181026
  Transmission Date: 20190204
  Serious: Yes (Other)
  Sender: FDA-Public Use
  Company Number: JP-DSJP-DSJ-2018-140510

PATIENT

DRUGS (2)
  1. LIXIANA TABLETS [Suspect]
     Active Substance: EDOXABAN TOSYLATE
     Dosage: 30MG/DAY
     Route: 048
  2. LIXIANA TABLETS [Suspect]
     Active Substance: EDOXABAN TOSYLATE
     Indication: PRODUCT USED FOR UNKNOWN INDICATION
     Dosage: 60MG/DAY
     Route: 048

REACTIONS (1)
  - Platelet count decreased [Not Recovered/Not Resolved]
